FAERS Safety Report 13855030 (Version 1)
Quarter: 2017Q3

REPORT INFORMATION
  Report Type: Spontaneous
  Country: ES (occurrence: ES)
  Receive Date: 20170810
  Receipt Date: 20170810
  Transmission Date: 20171127
  Serious: Yes (Hospitalization)
  Sender: FDA-Public Use
  Company Number: ES-PFIZER INC-2017341473

PATIENT
  Age: 82 Year
  Sex: Male

DRUGS (7)
  1. NOLOTIL /06276702/ [Interacting]
     Active Substance: METAMIZOLE MAGNESIUM
     Indication: PAIN
     Dosage: UNK, 1X/DAY
     Route: 048
     Dates: start: 20170211, end: 20170308
  2. CEFAZOLINA NORMON [Interacting]
     Active Substance: CEFAZOLIN SODIUM
     Indication: SKIN INFECTION
     Dosage: UNK, 1X/DAY
     Route: 042
     Dates: start: 20170207, end: 20170216
  3. RIFALDIN [Interacting]
     Active Substance: RIFAMPIN
     Indication: SKIN INFECTION
     Dosage: UNK, 1X/DAY
     Route: 048
     Dates: start: 20170212, end: 20170308
  4. AMOXICILLINA/CLAVULANICO NORMON [Interacting]
     Active Substance: AMOXICILLIN\CLAVULANATE POTASSIUM
     Indication: SKIN INFECTION
     Dosage: UNK, 1X/DAY
     Route: 048
     Dates: start: 20170210, end: 20170212
  5. DALACIN [Suspect]
     Active Substance: CLINDAMYCIN
     Indication: SKIN INFECTION
     Dosage: UNK, 1X/DAY
     Route: 048
     Dates: start: 20170212, end: 20170308
  6. GENTA-GOBENS [Interacting]
     Active Substance: GENTAMICIN SULFATE
     Indication: SKIN INFECTION
     Dosage: UNK, 1X/DAY
     Route: 042
     Dates: start: 20170207, end: 20170227
  7. GELOCATIL [Interacting]
     Active Substance: ACETAMINOPHEN
     Indication: PAIN
     Dosage: UNK, 1X/DAY
     Route: 048
     Dates: start: 20170211, end: 20170303

REACTIONS (2)
  - Drug interaction [Recovering/Resolving]
  - Acute kidney injury [Recovering/Resolving]

NARRATIVE: CASE EVENT DATE: 20170303
